FAERS Safety Report 4453656-1 (Version None)
Quarter: 2004Q3

REPORT INFORMATION
  Report Type: 
  Country: None (occurrence: None)
  Receive Date: 20040920
  Receipt Date: 20040824
  Transmission Date: 20050211
  Serious: Yes (Hospitalization)
  Sender: FDA-Public Use
  Company Number: US-BRISTOL-MYERS SQUIBB COMPANY-12681318

PATIENT
  Age: 70 Year
  Sex: Male
  Weight: 62 kg

DRUGS (6)
  1. CARBOPLATIN [Suspect]
     Indication: MESOTHELIOMA
     Route: 042
     Dates: start: 20040714, end: 20040714
  2. PEMETREXED DISODIUM [Suspect]
     Indication: MESOTHELIOMA
     Route: 042
     Dates: start: 20040714, end: 20040714
  3. VITAMIN B-12 [Concomitant]
     Indication: PROPHYLAXIS
     Dates: start: 20040707
  4. FOLIC ACID [Concomitant]
     Indication: PROPHYLAXIS
     Dates: start: 20040707
  5. MOTILIUM [Concomitant]
     Dates: end: 20040802
  6. DEXAMETHASONE [Concomitant]
     Dates: start: 20040713, end: 20040715

REACTIONS (2)
  - EXTRAPYRAMIDAL DISORDER [None]
  - THROMBOSIS [None]
